FAERS Safety Report 7987511-7 (Version None)
Quarter: 2011Q4

REPORT INFORMATION
  Report Type: 
  Country: None (occurrence: None)
  Receive Date: 20111216
  Receipt Date: 20111205
  Transmission Date: 20120403
  Serious: Yes (Death)
  Sender: FDA-Public Use
  Company Number: PHHY2011US109271

PATIENT
  Age: 38 Year
  Sex: Male

DRUGS (5)
  1. CITALOPRAM [Suspect]
  2. METOPROLOL TARTRATE [Suspect]
  3. HYDRALAZINE HCL [Suspect]
  4. CLONAZEPAM [Suspect]
  5. ETHYLENE GLYCOL [Suspect]

REACTIONS (1)
  - SUICIDAL IDEATION [None]
